FAERS Safety Report 22204138 (Version 1)
Quarter: 2023Q2

REPORT INFORMATION
  Report Type: Spontaneous
  Country: US (occurrence: US)
  Receive Date: 20230412
  Receipt Date: 20230412
  Transmission Date: 20230722
  Serious: No
  Sender: FDA-Public Use
  Company Number: US-PFIZER INC-202300150214

PATIENT
  Age: 55 Year
  Sex: Male

DRUGS (2)
  1. INLYTA [Suspect]
     Active Substance: AXITINIB
     Dosage: 3 MG, 2X/DAY (TAKE 3 TABLETS (3 MG TOTAL) EVERY 12 HOURS)
     Route: 048
     Dates: start: 20201117
  2. INLYTA [Suspect]
     Active Substance: AXITINIB
     Dosage: 5 MG, 2X/DAY (DOSE INCREASED TO 5MG TWICE A DAY)

REACTIONS (3)
  - Nasopharyngitis [Not Recovered/Not Resolved]
  - Sinus disorder [Not Recovered/Not Resolved]
  - Malaise [Not Recovered/Not Resolved]
